FAERS Safety Report 23193289 (Version 1)
Quarter: 2023Q4

REPORT INFORMATION
  Report Type: Spontaneous
  Country: US (occurrence: None)
  Receive Date: 20231115
  Receipt Date: 20231115
  Transmission Date: 20240110
  Serious: No
  Sender: FDA-Public Use
  Company Number: None

PATIENT
  Age: 54 Year
  Sex: Female

DRUGS (2)
  1. VTAMA [Suspect]
     Active Substance: TAPINAROF
     Indication: Dermatitis allergic
     Dosage: FREQUENCY : AS DIRECTED;?
     Dates: start: 202308
  2. VTAMA [Suspect]
     Active Substance: TAPINAROF
     Indication: Psoriasis

REACTIONS (2)
  - Pneumonia [None]
  - COVID-19 [None]
